FAERS Safety Report 10079743 (Version 2)
Quarter: 2014Q2

REPORT INFORMATION
  Report Type: Spontaneous
  Country: US (occurrence: US)
  Receive Date: 20140415
  Receipt Date: 20140417
  Transmission Date: 20141212
  Serious: Yes (Hospitalization)
  Sender: FDA-Public Use
  Company Number: US-GLAXOSMITHKLINE-A1068700A

PATIENT
  Sex: Female

DRUGS (12)
  1. ADVAIR [Suspect]
     Indication: LUNG DISORDER
     Dosage: 1PUFF TWICE PER DAY
     Route: 055
     Dates: start: 1999
  2. HYOSCYAMINE [Concomitant]
  3. LORATADINE [Concomitant]
  4. TRAMADOL [Concomitant]
  5. FIBER PILL [Concomitant]
  6. PROBIOTIC [Concomitant]
  7. IPRATROPIUM [Concomitant]
  8. ASPIRIN [Concomitant]
  9. ZEGERID [Concomitant]
  10. LEVOTHYROXINE [Concomitant]
  11. ACYCLOVIR [Concomitant]
  12. PAIN MEDICATION [Concomitant]

REACTIONS (13)
  - Lung neoplasm malignant [Not Recovered/Not Resolved]
  - Lung lobectomy [Not Recovered/Not Resolved]
  - Haemorrhage [Not Recovered/Not Resolved]
  - Diverticulitis [Recovered/Resolved]
  - Dyspnoea [Not Recovered/Not Resolved]
  - Feeling abnormal [Not Recovered/Not Resolved]
  - Irritable bowel syndrome [Recovered/Resolved]
  - Peripheral swelling [Not Recovered/Not Resolved]
  - Joint swelling [Not Recovered/Not Resolved]
  - Drug administration error [Unknown]
  - Rhinorrhoea [Recovered/Resolved]
  - Seasonal allergy [Recovered/Resolved]
  - Rhinitis allergic [Recovered/Resolved]
